FAERS Safety Report 16611456 (Version 2)
Quarter: 2019Q3

REPORT INFORMATION
  Report Type: Spontaneous
  Country: US (occurrence: US)
  Receive Date: 20190722
  Receipt Date: 20190723
  Transmission Date: 20191004
  Serious: No
  Sender: FDA-Public Use
  Company Number: US-ALLERGAN-1847921US

PATIENT
  Sex: Male

DRUGS (1)
  1. TRELSTAR [Suspect]
     Active Substance: TRIPTORELIN PAMOATE
     Indication: PROSTATE CANCER STAGE IV
     Dosage: UNK
     Route: 065
     Dates: start: 2013

REACTIONS (2)
  - Decreased appetite [Unknown]
  - Weight decreased [Unknown]
